FAERS Safety Report 4999403-6 (Version None)
Quarter: 2006Q2

REPORT INFORMATION
  Report Type: 
  Country: None (occurrence: None)
  Receive Date: 20060511
  Receipt Date: 20041122
  Transmission Date: 20061013
  Serious: Yes (Hospitalization)
  Sender: FDA-Public Use
  Company Number: US-ROCHE-386801

PATIENT
  Age: 51 Year
  Sex: Female
  Weight: 85 kg

DRUGS (10)
  1. PEG-INTERFERON ALFA 2A (RO 25-8310) [Suspect]
     Route: 058
     Dates: start: 20040927
  2. PEG-INTERFERON ALFA 2A (RO 25-8310) [Suspect]
     Route: 058
     Dates: start: 20040706, end: 20040920
  3. RIBAVIRIN [Suspect]
     Route: 048
     Dates: start: 20041031, end: 20050706
  4. RIBAVIRIN [Suspect]
     Route: 048
     Dates: start: 20040706, end: 20041031
  5. TIGAN [Concomitant]
     Dates: start: 20040720
  6. LORAZEPAM [Concomitant]
     Dates: start: 20021214
  7. PAROXETINE [Concomitant]
     Dates: start: 20040115
  8. ESTRADIOL [Concomitant]
     Dates: start: 20020615
  9. LISINOPRIL [Concomitant]
     Dates: start: 20030615
  10. SOMA [Concomitant]
     Dates: start: 19990615

REACTIONS (8)
  - DEHYDRATION [None]
  - DISORIENTATION [None]
  - DIZZINESS [None]
  - HAEMOGLOBIN DECREASED [None]
  - INFLUENZA [None]
  - PLATELET COUNT DECREASED [None]
  - SPEECH DISORDER [None]
  - WHITE BLOOD CELL COUNT DECREASED [None]
